FAERS Safety Report 9231777 (Version 2)
Quarter: 2013Q2

REPORT INFORMATION
  Report Type: Spontaneous
  Country: US (occurrence: US)
  Receive Date: 20130415
  Receipt Date: 20130422
  Transmission Date: 20140414
  Serious: No
  Sender: FDA-Public Use
  Company Number: US-PFIZER INC-2013117886

PATIENT
  Age: 56 Year
  Sex: Female
  Weight: 63.5 kg

DRUGS (15)
  1. LYRICA [Suspect]
     Indication: NEURALGIA
     Dosage: 75 MG, 4X/DAY
     Route: 048
     Dates: start: 20130407, end: 20130413
  2. LYRICA [Suspect]
     Indication: ANXIETY
  3. LYRICA [Suspect]
     Indication: DEPRESSION
  4. FLEXERIL [Suspect]
     Indication: MYALGIA
     Dosage: 10 MG, 2X/DAY
     Route: 048
  5. FLEXERIL [Suspect]
     Indication: MUSCLE RELAXANT THERAPY
  6. CELEXA [Suspect]
     Indication: ANXIETY
     Dosage: 10 MG, 1X/DAY
  7. CELEXA [Suspect]
     Indication: DEPRESSION
     Dosage: 40 MG, SINGLE
  8. CELEXA [Suspect]
     Dosage: 20 MG, 1X/DAY
  9. CLOZAPINE [Concomitant]
     Indication: ANXIETY
     Dosage: UNK, AS NEEDED (3 TABLETS OF 25 MG AT NIGHT AND 2 TABLETS OF 25 MG DURING THE DAY)
  10. COZAAR [Concomitant]
     Indication: HYPERTENSION
     Dosage: 100 MG, DAILY
  11. NORVASC [Concomitant]
     Indication: HYPERTENSION
     Dosage: 5 MG, DAILY
  12. ADDERALL [Concomitant]
     Indication: ATTENTION DEFICIT/HYPERACTIVITY DISORDER
     Dosage: 10 MG, AS NEEDED
  13. KLONOPIN [Concomitant]
     Indication: ANXIETY
     Dosage: UNK, DAILY
  14. VALIUM [Concomitant]
     Indication: ANXIETY
     Dosage: UNK
  15. ULTRACET [Concomitant]
     Indication: HEADACHE
     Dosage: UNK

REACTIONS (4)
  - Intentional drug misuse [Unknown]
  - Therapeutic response unexpected [Unknown]
  - Drug ineffective [Unknown]
  - Lethargy [Unknown]
